FAERS Safety Report 19189489 (Version 1)
Quarter: 2021Q2

REPORT INFORMATION
  Report Type: Spontaneous
  Country: US (occurrence: US)
  Receive Date: 20210428
  Receipt Date: 20210428
  Transmission Date: 20210717
  Serious: Yes (Hospitalization)
  Sender: FDA-Public Use
  Company Number: None

PATIENT
  Age: 73 Year
  Sex: Male
  Weight: 75 kg

DRUGS (1)
  1. TOPAMAX [Suspect]
     Active Substance: TOPIRAMATE
     Indication: MIGRAINE
     Route: 048
     Dates: start: 20201027, end: 20201217

REACTIONS (6)
  - Decreased appetite [None]
  - Insomnia [None]
  - Depressed mood [None]
  - Adjustment disorder with depressed mood [None]
  - Anhedonia [None]
  - Therapy cessation [None]

NARRATIVE: CASE EVENT DATE: 20201217
